FAERS Safety Report 10425829 (Version 2)
Quarter: 2014Q3

REPORT INFORMATION
  Report Type: Spontaneous
  Country: JP (occurrence: JP)
  Receive Date: 20140903
  Receipt Date: 20140905
  Transmission Date: 20150326
  Serious: Yes (Hospitalization)
  Sender: FDA-Public Use
  Company Number: JP-MERCK-1409JPN000585

PATIENT
  Age: 90 Year
  Sex: Male

DRUGS (4)
  1. AMARYL [Suspect]
     Active Substance: GLIMEPIRIDE
     Dosage: 2 MG, BID
     Route: 048
  2. WARFARIN [Concomitant]
     Active Substance: WARFARIN
  3. GLACTIV [Suspect]
     Active Substance: SITAGLIPTIN
     Indication: TYPE 2 DIABETES MELLITUS
     Dosage: 50 MG, QD
     Route: 048
     Dates: end: 20140826
  4. ASPIRIN. [Concomitant]
     Active Substance: ASPIRIN

REACTIONS (1)
  - Hypoglycaemia [Not Recovered/Not Resolved]

NARRATIVE: CASE EVENT DATE: 20140826
